FAERS Safety Report 25900117 (Version 3)
Quarter: 2025Q4

REPORT INFORMATION
  Report Type: Spontaneous
  Country: EU (occurrence: EU)
  Receive Date: 20251009
  Receipt Date: 20251209
  Transmission Date: 20260118
  Serious: Yes (Hospitalization)
  Sender: MYLAN
  Company Number: None

PATIENT
  Age: 76 Year
  Sex: Female
  Weight: 55 kg

DRUGS (2)
  1. ISOTRETINOIN [Suspect]
     Active Substance: ISOTRETINOIN
     Indication: Rosacea
     Dosage: 20 MILLIGRAM, QD (1 CAPSULE ONCE DAILY)
     Dates: start: 20241110
  2. OMEPRAZOLE [Concomitant]
     Active Substance: OMEPRAZOLE
     Dosage: UNK

REACTIONS (9)
  - Brain stem infarction [Recovering/Resolving]
  - Diplopia [Recovering/Resolving]
  - Physical deconditioning [Unknown]
  - Myalgia [Unknown]
  - Arthralgia [Unknown]
  - Dry skin [Unknown]
  - Dry eye [Unknown]
  - Lip dry [Unknown]
  - Off label use [Unknown]

NARRATIVE: CASE EVENT DATE: 20241110
